FAERS Safety Report 22158116 (Version 1)
Quarter: 2023Q1

REPORT INFORMATION
  Report Type: Spontaneous
  Country: JP (occurrence: JP)
  Receive Date: 20230330
  Receipt Date: 20230330
  Transmission Date: 20230418
  Serious: Yes (Other)
  Sender: FDA-Public Use
  Company Number: JP-BIOGEN-2023BI01194247

PATIENT
  Sex: Female

DRUGS (2)
  1. TECFIDERA [Suspect]
     Active Substance: DIMETHYL FUMARATE
     Indication: Multiple sclerosis
     Route: 050
     Dates: start: 20230222, end: 20230228
  2. TECFIDERA [Suspect]
     Active Substance: DIMETHYL FUMARATE
     Dosage: THE DOSE OF TECFIDERA WAS INCREASED ACCORDING TO THE PACKAGE INSER.
     Route: 050
     Dates: start: 20230301, end: 20230303

REACTIONS (1)
  - Cytomegalovirus hepatitis [Unknown]

NARRATIVE: CASE EVENT DATE: 20230301
